FAERS Safety Report 7525203-9 (Version None)
Quarter: 2011Q2

REPORT INFORMATION
  Report Type: 
  Country: None (occurrence: None)
  Receive Date: 20110606
  Receipt Date: 20110602
  Transmission Date: 20111010
  Serious: Yes (Hospitalization, Disabling, Other)
  Sender: FDA-Public Use
  Company Number: AU-AMGEN-AUSSP2010007116

PATIENT
  Sex: Female
  Weight: 80 kg

DRUGS (4)
  1. RITUXAN [Concomitant]
  2. IMMUNE GLOBULIN NOS [Suspect]
     Dosage: 63 G, QD
     Dates: start: 20101119, end: 20101120
  3. NPLATE [Suspect]
     Indication: IDIOPATHIC THROMBOCYTOPENIC PURPURA
     Dosage: 2 A?G/KG, Q2WK
     Dates: start: 20100101
  4. NPLATE [Suspect]
     Dosage: 600 A?G, ONE TIME DOSE
     Dates: start: 20101119, end: 20101119

REACTIONS (5)
  - PLATELET COUNT INCREASED [None]
  - APHASIA [None]
  - VAGINAL HAEMORRHAGE [None]
  - THROMBOTIC STROKE [None]
  - MEDICATION ERROR [None]
